FAERS Safety Report 16537488 (Version 1)
Quarter: 2019Q3

REPORT INFORMATION
  Report Type: Other
  Country: CN (occurrence: CN)
  Receive Date: 20190708
  Receipt Date: 20190708
  Transmission Date: 20191004
  Serious: Yes (Death)
  Sender: FDA-Public Use
  Company Number: CN-AGG-11-2017-1609

PATIENT

DRUGS (8)
  1. CLOPIDOGREL [Concomitant]
     Active Substance: CLOPIDOGREL BISULFATE
     Dosage: INITIAL DOSE
  2. CLOPIDOGREL [Concomitant]
     Active Substance: CLOPIDOGREL BISULFATE
     Dosage: MAINTENANCE DOSE
  3. AGGRASTAT [Suspect]
     Active Substance: TIROFIBAN HYDROCHLORIDE
     Indication: ANTIPLATELET THERAPY
     Dosage: 0.4 MCG/KG/MIN FOR 30 MIN
     Route: 041
  4. LOW-MOLECULAR-WEIGHT HEPARIN (LMWH) [Concomitant]
     Dosage: HALF OF THE STANDARD RECOMMENDED DOSE
     Route: 058
  5. AGGRASTAT [Suspect]
     Active Substance: TIROFIBAN HYDROCHLORIDE
     Indication: ANTIPLATELET THERAPY
     Dosage: 0.1 MCG/KG/MIN FOR 48-72 HOURS
     Route: 041
  6. ASPIRIN. [Concomitant]
     Active Substance: ASPIRIN
     Dosage: 75-100 MG (MAINTENANCE DOSE)
  7. LOW-MOLECULAR-WEIGHT HEPARIN (LMWH) [Concomitant]
     Dosage: LMWH WAS RESUMED FOR 2-3 DAYS ONCE TIROFIBAN CEASED
  8. ASPIRIN. [Concomitant]
     Active Substance: ASPIRIN
     Dosage: INITIAL DOSE

REACTIONS (1)
  - Death [Fatal]
